FAERS Safety Report 16282044 (Version 3)
Quarter: 2019Q2

REPORT INFORMATION
  Report Type: Report from Study
  Country: CA (occurrence: CA)
  Receive Date: 20190507
  Receipt Date: 20190610
  Transmission Date: 20190711
  Serious: Yes (Hospitalization, Other)
  Sender: FDA-Public Use
  Company Number: CA-GLAXOSMITHKLINE-CA2019GSK079081

PATIENT
  Age: 70 Year
  Sex: Male

DRUGS (2)
  1. MEPOLIZUMAB [Suspect]
     Active Substance: MEPOLIZUMAB
     Indication: ASTHMA
     Dosage: 100 MG, Z(MONTHLY)
     Route: 042
     Dates: start: 20190403
  2. MEPOLIZUMAB [Suspect]
     Active Substance: MEPOLIZUMAB
     Dosage: 100 MG, Z(MONTLHY)
     Route: 042

REACTIONS (6)
  - Pneumonia [Unknown]
  - Dyspnoea [Unknown]
  - Lung infection [Unknown]
  - Respiration abnormal [Unknown]
  - Cough [Unknown]
  - Device dislocation [Unknown]

NARRATIVE: CASE EVENT DATE: 20190515
